FAERS Safety Report 9437377 (Version 1)
Quarter: 2013Q3

REPORT INFORMATION
  Report Type: Report from Study
  Country: AU (occurrence: AU)
  Receive Date: 20130802
  Receipt Date: 20130802
  Transmission Date: 20140515
  Serious: Yes (Hospitalization, Other)
  Sender: FDA-Public Use
  Company Number: PHHY2011AU09173

PATIENT
  Age: 69 Year
  Sex: Male

DRUGS (20)
  1. GLIVEC [Suspect]
     Indication: CHRONIC MYELOID LEUKAEMIA
     Dosage: 400 MG, DAILY
     Route: 048
     Dates: start: 20100206
  2. METFORMIN [Concomitant]
  3. AMARYL [Concomitant]
  4. DILTIAZEM [Concomitant]
  5. NITROLINGUAL-SPRAY [Concomitant]
  6. VENTOLIN                           /00942701/ [Concomitant]
  7. SERETIDE [Concomitant]
  8. ASPIRIN [Concomitant]
  9. LUVOX [Concomitant]
  10. NOVOMIX [Concomitant]
  11. SPIRIVA [Concomitant]
  12. MINIPRESS [Concomitant]
  13. NEXIUM 1-2-3 [Concomitant]
  14. MAXOLON [Concomitant]
  15. EPIPEN [Concomitant]
  16. ATACAND PLUS [Concomitant]
  17. LASIX [Concomitant]
  18. SLOW K [Concomitant]
  19. PANADOL OSTEO [Concomitant]
  20. VITAMIN D NOS [Concomitant]

REACTIONS (7)
  - Gastroenteritis salmonella [Recovered/Resolved]
  - Deafness [Unknown]
  - Diarrhoea [Recovered/Resolved]
  - Vomiting [Recovered/Resolved]
  - Nausea [Recovered/Resolved]
  - Blood glucose decreased [Recovered/Resolved]
  - Decreased appetite [Recovered/Resolved]
